FAERS Safety Report 5671378-6 (Version None)
Quarter: 2008Q1

REPORT INFORMATION
  Report Type: 
  Country: None (occurrence: None)
  Receive Date: 20080313
  Receipt Date: 20070131
  Transmission Date: 20080703
  Serious: Yes (Hospitalization)
  Sender: FDA-Public Use
  Company Number: MK-6029912

PATIENT
  Age: 40 Year
  Sex: Female
  Weight: 66 kg

DRUGS (5)
  1. RANITIDINE [Suspect]
     Indication: GASTROOESOPHAGEAL REFLUX DISEASE
     Dosage: 150 MG;TWICE A DAY;ORAL
     Route: 048
     Dates: start: 20060324, end: 20060423
  2. PHARMACIA + UPJOHN NICORETTE (NO PREF. NAME) [Suspect]
     Indication: SMOKING CESSATION THERAPY
     Dosage: ;UNKNOWN;NASAL
     Route: 045
     Dates: start: 20060330, end: 20060425
  3. FOLIC ACID [Concomitant]
  4. NICORETTE [Concomitant]
  5. NORFLOXACIN [Concomitant]

REACTIONS (3)
  - ERYTHEMA MULTIFORME [None]
  - PHARYNGEAL OEDEMA [None]
  - SWOLLEN TONGUE [None]
